FAERS Safety Report 24720513 (Version 1)
Quarter: 2024Q4

REPORT INFORMATION
  Report Type: Spontaneous
  Country: ES (occurrence: ES)
  Receive Date: 20241211
  Receipt Date: 20241211
  Transmission Date: 20250115
  Serious: Yes (Hospitalization, Other)
  Sender: SANDOZ
  Company Number: ES-002147023-PHHY2014ES066791

PATIENT
  Age: 35 Year
  Sex: Female

DRUGS (2)
  1. CYPROTERONE ACETATE [Suspect]
     Active Substance: CYPROTERONE ACETATE
     Indication: Feminisation acquired
     Dosage: 50 MG, BID
     Route: 065
     Dates: start: 2012
  2. ESTRADIOL [Suspect]
     Active Substance: ESTRADIOL
     Indication: Feminisation acquired
     Dosage: 100 MICROGRAM PER DAY; 1 IN 1 D
     Route: 062
     Dates: start: 2012

REACTIONS (7)
  - Meningioma benign [Unknown]
  - Visual impairment [Recovering/Resolving]
  - Headache [Recovering/Resolving]
  - Visual field defect [Recovered/Resolved]
  - Optic atrophy [Unknown]
  - Meningioma [Recovered/Resolved]
  - Medication error [Unknown]

NARRATIVE: CASE EVENT DATE: 20120101
